FAERS Safety Report 6928951-4 (Version None)
Quarter: 2010Q3

REPORT INFORMATION
  Report Type: 
  Country: None (occurrence: None)
  Receive Date: 20100817
  Receipt Date: 20100805
  Transmission Date: 20110219
  Serious: Yes (Other)
  Sender: FDA-Public Use
  Company Number: US-PFIZER INC-2010094668

PATIENT
  Sex: Female

DRUGS (4)
  1. REVATIO [Suspect]
     Indication: ATRIAL FIBRILLATION
     Dosage: 20 MG, 3X/DAY
  2. REVATIO [Suspect]
     Indication: OBSTRUCTIVE AIRWAYS DISORDER
  3. REVATIO [Suspect]
     Indication: FOREIGN BODY
  4. REVATIO [Suspect]
     Indication: CALCITONIN SECRETION DISORDER

REACTIONS (1)
  - PULMONARY ARTERIAL PRESSURE DECREASED [None]
